FAERS Safety Report 5678313-5 (Version None)
Quarter: 2008Q1

REPORT INFORMATION
  Report Type: 
  Country: None (occurrence: None)
  Receive Date: 20080320
  Receipt Date: 20080312
  Transmission Date: 20080703
  Serious: Yes (Other)
  Sender: FDA-Public Use
  Company Number: CHPA2008CA04666

PATIENT
  Age: 54 Month
  Sex: Male
  Weight: 16.3 kg

DRUGS (3)
  1. TRIAMINIC COLD AND NIGHT TIME COUGH GRAPE (N (CONTINUED) [Suspect]
     Indication: NASOPHARYNGITIS
     Dosage: ORAL
     Route: 048
  2. DIMETAPP [Suspect]
  3. ^BENEYLIN^ () [Suspect]

REACTIONS (1)
  - CONVULSION [None]
